FAERS Safety Report 10076756 (Version 1)
Quarter: 2014Q2

REPORT INFORMATION
  Report Type: Spontaneous
  Country: US (occurrence: None)
  Receive Date: 20140411
  Receipt Date: 20140411
  Transmission Date: 20141212
  Serious: No
  Sender: FDA-Public Use
  Company Number: None

PATIENT
  Age: 47 Year
  Sex: Female
  Weight: 64.41 kg

DRUGS (1)
  1. GENERESS FE [Suspect]
     Indication: CONTRACEPTION

REACTIONS (2)
  - Vertigo [None]
  - Dizziness [None]
